FAERS Safety Report 5859154-2 (Version None)
Quarter: 2008Q3

REPORT INFORMATION
  Report Type: 
  Country: None (occurrence: None)
  Receive Date: 20080825
  Receipt Date: 20080821
  Transmission Date: 20090109
  Serious: Yes (Hospitalization)
  Sender: FDA-Public Use
  Company Number: S08-JPN-02087-01

PATIENT
  Age: 72 Year
  Sex: Female
  Weight: 47.5 kg

DRUGS (16)
  1. ESCITALOPRAM OXALATE [Suspect]
     Indication: MAJOR DEPRESSION
     Dosage: 10 MG (10 MG, 1 IN 1 D), ORAL
     Route: 048
     Dates: start: 20080328, end: 20080408
  2. ESCITALOPRAM OXALATE [Suspect]
     Indication: MAJOR DEPRESSION
     Dosage: 20 MG (20 MG, 1 IN 1 D), ORAL
     Route: 048
     Dates: start: 20080409, end: 20080520
  3. NORVASC (AMLODIPINE BESILATE) (TABLETS) (AMLODIPINE BESILATE) [Concomitant]
  4. GASTER (TABLETS) [Concomitant]
  5. DIGOSIN (DIGOXIN) (TABLETS) (DIGOXIN) [Concomitant]
  6. PERSANTIN (DIPYRIDAMOLE) (TABLETS) (DIPYRIDAMOLE) [Concomitant]
  7. MAGMITT (MAGNESIUM) (TABLETS) [Concomitant]
  8. PRIMPERAN (METOCLOPRAMIDE) (TABLETS) (METOCLOPRAMIDE) [Concomitant]
  9. RIZE (CLOTIAZEPAM) (TABLETS) (CLOTIAZEPAM) [Concomitant]
  10. ROHYPNOL (FLUNITRAZEPAM) (TABLETS) (FLUNITRAZEPAM) [Concomitant]
  11. ALOSENN (TABLETS) [Concomitant]
  12. MYSLEE (ZOLPIDEM TARTRATE) (TABLETS) (ZOLPIDEM TARTRATE) [Concomitant]
  13. CONSTAN (ALPRAZOLAM) (TABLETS) (ALPRAZOLAM) [Concomitant]
  14. TOFRANIL (IMIPRAMINE HYDROCHLORIDE) (TABLETS) (IMIPRAMINE HYDROCHLORID [Concomitant]
  15. LAXOBERON (SODIUM PICOSULFATE) (TABLETS) (SODIUM PICOSULFATE) [Concomitant]
  16. MAGNESIUM OXIDE (TABLETS) [Concomitant]

REACTIONS (41)
  - ACTIVITIES OF DAILY LIVING IMPAIRED [None]
  - ALANINE AMINOTRANSFERASE INCREASED [None]
  - ANOREXIA [None]
  - APATHY [None]
  - ASPARTATE AMINOTRANSFERASE INCREASED [None]
  - BLOOD ALBUMIN INCREASED [None]
  - BLOOD ALKALINE PHOSPHATASE INCREASED [None]
  - BLOOD BILIRUBIN INCREASED [None]
  - BLOOD CHLORIDE INCREASED [None]
  - BLOOD CHOLESTEROL INCREASED [None]
  - BLOOD CREATINE PHOSPHOKINASE INCREASED [None]
  - BLOOD CREATININE DECREASED [None]
  - BLOOD GLUCOSE INCREASED [None]
  - BLOOD LACTATE DEHYDROGENASE INCREASED [None]
  - BLOOD POTASSIUM INCREASED [None]
  - BLOOD SODIUM INCREASED [None]
  - BLOOD UREA INCREASED [None]
  - BLOOD URIC ACID INCREASED [None]
  - CONSTIPATION [None]
  - DRUG INEFFECTIVE [None]
  - DYSGEUSIA [None]
  - FEELING GUILTY [None]
  - GAMMA-GLUTAMYLTRANSFERASE INCREASED [None]
  - GASTROINTESTINAL DISORDER [None]
  - HAEMATOCRIT INCREASED [None]
  - HAEMOGLOBIN INCREASED [None]
  - INITIAL INSOMNIA [None]
  - INSOMNIA [None]
  - INTESTINAL OBSTRUCTION [None]
  - IRRITABILITY [None]
  - MALAISE [None]
  - NIGHT SWEATS [None]
  - PANIC REACTION [None]
  - PARALYSIS [None]
  - PLATELET COUNT INCREASED [None]
  - PROTEIN TOTAL DECREASED [None]
  - PSYCHOMOTOR RETARDATION [None]
  - RED BLOOD CELL COUNT INCREASED [None]
  - SUICIDAL IDEATION [None]
  - WEIGHT DECREASED [None]
  - WHITE BLOOD CELL COUNT INCREASED [None]
